FAERS Safety Report 10388077 (Version 2)
Quarter: 2014Q3

REPORT INFORMATION
  Report Type: Spontaneous
  Country: US (occurrence: US)
  Receive Date: 20140815
  Receipt Date: 20140815
  Transmission Date: 20150326
  Serious: Yes (Hospitalization)
  Sender: FDA-Public Use
  Company Number: PHHY2014US077841

PATIENT
  Age: 84 Year
  Sex: Male

DRUGS (3)
  1. BACLOFEN. [Suspect]
     Active Substance: BACLOFEN
     Indication: NECK PAIN
     Dosage: 10 MG, UP TO TWICE DAILY
     Route: 048
  2. ACETAMINOPHEN. [Concomitant]
     Active Substance: ACETAMINOPHEN
     Indication: NECK PAIN
     Dosage: 1 G, TID
     Route: 048
  3. DICLOFENAC [Suspect]
     Active Substance: DICLOFENAC
     Indication: NECK PAIN
     Dosage: 75 MG, PRN, UP TO TWICE DAILY
     Route: 048

REACTIONS (8)
  - Confusional state [Recovered/Resolved]
  - Tenderness [Recovered/Resolved]
  - Neck pain [Unknown]
  - Renal failure acute [Recovered/Resolved]
  - Nephropathy [Recovered/Resolved]
  - Dyskinesia [Recovered/Resolved]
  - Joint hyperextension [Recovered/Resolved]
  - Toxicity to various agents [Recovered/Resolved]
